FAERS Safety Report 7521484-6 (Version None)
Quarter: 2011Q2

REPORT INFORMATION
  Report Type: 
  Country: None (occurrence: None)
  Receive Date: 20110603
  Receipt Date: 20110520
  Transmission Date: 20111010
  Serious: Yes (Other)
  Sender: FDA-Public Use
  Company Number: IT-BAYER-2011-039556

PATIENT
  Age: 65 Year
  Sex: Male

DRUGS (5)
  1. NEXAVAR [Suspect]
     Indication: HEPATIC NEOPLASM MALIGNANT RESECTABLE
     Dosage: DAILY DOSE 800 MG
     Route: 048
     Dates: start: 20101117, end: 20110302
  2. CLONIDINE HCL [Concomitant]
     Route: 062
  3. RABEPRAZOLE SODIUM [Concomitant]
     Dosage: DAILY DOSE 20 MG
     Route: 048
  4. ENOXAPARIN SODIUM [Concomitant]
     Dosage: 4000 U
     Route: 058
  5. ALDACTONE [Concomitant]
     Dosage: DAILY DOSE 100 MG
     Route: 048

REACTIONS (3)
  - EROSIVE OESOPHAGITIS [None]
  - GASTROINTESTINAL HAEMORRHAGE [None]
  - ANAEMIA [None]
